FAERS Safety Report 9222148 (Version 1)
Quarter: 2013Q2

REPORT INFORMATION
  Report Type: Spontaneous
  Country: US (occurrence: US)
  Receive Date: 20130410
  Receipt Date: 20130410
  Transmission Date: 20140414
  Serious: Yes (Other)
  Sender: FDA-Public Use
  Company Number: PHEH2013US001031

PATIENT
  Age: 23 Year
  Sex: Male

DRUGS (3)
  1. GILENYA [Suspect]
     Indication: MULTIPLE SCLEROSIS
     Dosage: 0.5 MG, QD
     Route: 048
     Dates: start: 20130104, end: 20130110
  2. GILENYA [Suspect]
     Dosage: 0.5 MG, QD
     Route: 048
  3. NUEDEXTA [Concomitant]

REACTIONS (5)
  - Suicidal ideation [Unknown]
  - Anger [Unknown]
  - Sneezing [Not Recovered/Not Resolved]
  - Pallor [Unknown]
  - Asthenia [Unknown]
